FAERS Safety Report 6338074-3 (Version None)
Quarter: 2009Q3

REPORT INFORMATION
  Report Type: 
  Country: None (occurrence: None)
  Receive Date: 20090902
  Receipt Date: 20090820
  Transmission Date: 20100115
  Serious: Yes (Hospitalization)
  Sender: FDA-Public Use
  Company Number: PHHY2009TW35113

PATIENT
  Sex: Male
  Weight: 41 kg

DRUGS (5)
  1. ICL670A ICL+DISTAB [Suspect]
     Indication: THALASSAEMIA BETA
     Dosage: 1625 MG PER DAY
     Route: 048
     Dates: start: 20060101, end: 20090816
  2. HUMULIN N [Concomitant]
     Indication: DIABETES MELLITUS
     Dosage: 16.6 U TWICE DAILY
     Route: 058
     Dates: start: 20000501
  3. HUMULIN R [Concomitant]
     Indication: DIABETES MELLITUS
     Dosage: 6.5 U TWICE DAILY
     Route: 058
     Dates: start: 20000501
  4. PREMARIN [Concomitant]
     Indication: HYPOGONADISM
     Dosage: 0.625 MG, QD
     Dates: start: 20030101
  5. PROVERA [Concomitant]
     Indication: HYPOGONADISM
     Dosage: 5 MG, QD
     Dates: start: 20030101

REACTIONS (6)
  - ABDOMINAL PAIN [None]
  - DEHYDRATION [None]
  - DUODENAL ULCER [None]
  - HELICOBACTER INFECTION [None]
  - METABOLIC ACIDOSIS [None]
  - VOMITING [None]
